FAERS Safety Report 10152001 (Version 1)
Quarter: 2014Q2

REPORT INFORMATION
  Report Type: Spontaneous
  Country: US (occurrence: US)
  Receive Date: 20140505
  Receipt Date: 20140505
  Transmission Date: 20141212
  Serious: No
  Sender: FDA-Public Use
  Company Number: US-TEVA-417392USA

PATIENT
  Sex: Male

DRUGS (3)
  1. CEFALEXIN [Suspect]
     Indication: BACTERIAL INFECTION
     Dates: start: 20130628, end: 20130701
  2. METRONIDAZOLE [Suspect]
     Indication: BACTERIAL INFECTION
     Dates: start: 20130628, end: 20130701
  3. BLOOD PRESSURE (NOS) [Concomitant]

REACTIONS (2)
  - Chest pain [Recovered/Resolved]
  - Headache [Not Recovered/Not Resolved]
